FAERS Safety Report 7700565-8 (Version None)
Quarter: 2011Q3

REPORT INFORMATION
  Report Type: 
  Country: None (occurrence: None)
  Receive Date: 20110817
  Receipt Date: 20110809
  Transmission Date: 20111222
  Serious: Yes (Death)
  Sender: FDA-Public Use
  Company Number: JPI-P-013256

PATIENT
  Age: 63 Year
  Sex: Female

DRUGS (6)
  1. QUETIAPINE FUMARATE [Concomitant]
  2. DIVALPROEX SODIUM [Concomitant]
  3. UNSPECIFIED PAIN MEDICATIONS [Concomitant]
  4. DULOXETINE HYDROCHLORIDE [Concomitant]
  5. XYREM [Suspect]
     Indication: INSOMNIA
     Dosage: 9 GM (4.5 GM, 2 IN 1 D), ORAL
     Route: 048
     Dates: start: 20040519
  6. GAMMA-AMINOBUTYRIC [Concomitant]

REACTIONS (1)
  - DIARRHOEA [None]
